FAERS Safety Report 4518011-4 (Version None)
Quarter: 2004Q4

REPORT INFORMATION
  Report Type: 
  Country: None (occurrence: None)
  Receive Date: 20041130
  Receipt Date: 20041116
  Transmission Date: 20050328
  Serious: Yes (Death, Hospitalization, Other)
  Sender: FDA-Public Use
  Company Number: US_0411108417

PATIENT
  Age: 49 Year
  Sex: Female

DRUGS (1)
  1. HUMULIN N [Suspect]
     Indication: DIABETES MELLITUS

REACTIONS (5)
  - BLOOD GLUCOSE DECREASED [None]
  - BREATH ODOUR [None]
  - CHEST PAIN [None]
  - LOSS OF CONSCIOUSNESS [None]
  - PULMONARY THROMBOSIS [None]
